FAERS Safety Report 4982897-X (Version None)
Quarter: 2006Q2

REPORT INFORMATION
  Report Type: 
  Country: None (occurrence: None)
  Receive Date: 20060420
  Receipt Date: 20060406
  Transmission Date: 20061013
  Serious: Yes (Disabling)
  Sender: FDA-Public Use
  Company Number: HQWYE723110APR06

PATIENT
  Age: 57 Year
  Sex: Male

DRUGS (1)
  1. EFFEXOR XR [Suspect]
     Indication: DEPRESSION
     Dosage: 150 MG 2X PER 1 DAY, ORAL
     Route: 048
     Dates: end: 20060401

REACTIONS (3)
  - EMOTIONAL DISORDER [None]
  - FLAT AFFECT [None]
  - LOSS OF LIBIDO [None]
